FAERS Safety Report 11124304 (Version 1)
Quarter: 2015Q2

REPORT INFORMATION
  Report Type: Spontaneous
  Country: US (occurrence: None)
  Receive Date: 20150519
  Receipt Date: 20150519
  Transmission Date: 20150821
  Serious: Yes (Other)
  Sender: FDA-Public Use
  Company Number: None

PATIENT
  Age: 65 Year
  Sex: Female
  Weight: 113.4 kg

DRUGS (7)
  1. PREDNISONE 10MG GENERIC [Suspect]
     Active Substance: PREDNISONE
     Indication: ARTHRALGIA
     Dosage: 5 PILLS/ 5 DAYS?4, 3, 2, 1 PILLS 2D
     Route: 048
     Dates: start: 20150429, end: 20150512
  2. SYNTHRIOID [Concomitant]
  3. ASPIRIN. [Concomitant]
     Active Substance: ASPIRIN
  4. MULTIVITAMIN [Concomitant]
     Active Substance: VITAMINS
  5. PREDNISONE 10MG GENERIC [Suspect]
     Active Substance: PREDNISONE
     Indication: ARTHRITIS
     Dosage: 5 PILLS/ 5 DAYS?4, 3, 2, 1 PILLS 2D
     Route: 048
     Dates: start: 20150429, end: 20150512
  6. HCTZ [Concomitant]
     Active Substance: HYDROCHLOROTHIAZIDE
  7. MULTIVITAMIN [Concomitant]
     Active Substance: VITAMINS

REACTIONS (2)
  - Kidney infection [None]
  - Nephrolithiasis [None]

NARRATIVE: CASE EVENT DATE: 20150515
